FAERS Safety Report 19562766 (Version 1)
Quarter: 2021Q3

REPORT INFORMATION
  Report Type: Spontaneous
  Country: US (occurrence: US)
  Receive Date: 20210716
  Receipt Date: 20210716
  Transmission Date: 20211014
  Serious: Yes (Other)
  Sender: FDA-Public Use
  Company Number: None

PATIENT
  Age: 34 Year
  Sex: Female
  Weight: 117 kg

DRUGS (1)
  1. NEUTROGENA SUNSCREEN NOS [Suspect]
     Active Substance: AVOBENZONE\HOMOSALATE\OCTISALATE\OCTOCRYLENE OR AVOBENZONE\HOMOSALATE\OCTISALATE\OCTOCRYLENE\OXYBENZONE
     Indication: PROPHYLAXIS AGAINST SOLAR RADIATION
     Dates: start: 20210623, end: 20210623

REACTIONS (10)
  - Nausea [None]
  - Rash [None]
  - Blister [None]
  - Eye swelling [None]
  - Dizziness [None]
  - Fatigue [None]
  - Confusional state [None]
  - Thermal burn [None]
  - Recalled product administered [None]
  - Swelling face [None]

NARRATIVE: CASE EVENT DATE: 20210624
